FAERS Safety Report 4639365-4 (Version None)
Quarter: 2005Q2

REPORT INFORMATION
  Report Type: 
  Country: None (occurrence: None)
  Receive Date: 20050418
  Receipt Date: 20050315
  Transmission Date: 20051028
  Serious: Yes (Death)
  Sender: FDA-Public Use
  Company Number: 2005-BP-03687NB

PATIENT
  Age: 80 Year
  Sex: Male

DRUGS (14)
  1. SPIROPENT TABLET (CLENBUTEROL HYDROCHLORIDE) (TA) (CLENBUTEROL-HCL) [Suspect]
     Indication: ASTHMA
     Dosage: 20 MCG PO
     Route: 048
  2. THEOLONG (THEOPHYLLINE) (TA) [Concomitant]
  3. NITOROL (ISOSORBIDE DINITRATE) (TA) [Concomitant]
  4. BAYASPIRIN (ACETYLSALICYLIC ACID) (TA) [Concomitant]
  5. FUROSEMIDE (FUROSEMIDE) (TA) [Concomitant]
  6. NU-LOTAN (LOSARTAN POTASSIUM) (TA) [Concomitant]
  7. SPIRONOLACTONE (SPIRONOLACTONE) (TA) [Concomitant]
  8. ROKUMI-GAN (ROKUMI-GAN) (GR) [Concomitant]
  9. CLARITH (CLARITHROMYCIN) (TA) [Concomitant]
  10. SENNOSIDE (TA) [Concomitant]
  11. PREDNISOLONE [Concomitant]
  12. TAIHO (TTS) [Concomitant]
  13. TULOBUTEROL (TULOBUTEROL) (TTS) [Concomitant]
  14. FLUTIDE (FLUTICASONE PROPIONATE) (AE) [Concomitant]

REACTIONS (1)
  - VENTRICULAR FIBRILLATION [None]
